FAERS Safety Report 7394877-8 (Version None)
Quarter: 2011Q2

REPORT INFORMATION
  Report Type: 
  Country: None (occurrence: None)
  Receive Date: 20110405
  Receipt Date: 20110329
  Transmission Date: 20111010
  Serious: Yes (Hospitalization)
  Sender: FDA-Public Use
  Company Number: A0921324A

PATIENT
  Age: 63 Year
  Sex: Female

DRUGS (2)
  1. VENTOLIN HFA [Suspect]
     Route: 055
  2. ADVAIR DISKUS 100/50 [Suspect]
     Route: 055

REACTIONS (2)
  - APPARENT DEATH [None]
  - MALAISE [None]
